FAERS Safety Report 8773971 (Version 3)
Quarter: 2012Q4

REPORT INFORMATION
  Report Type: 
  Country: BR (occurrence: BR)
  Receive Date: 20120908
  Receipt Date: 20120920
  Transmission Date: 20130627
  Serious: Yes (Hospitalization, Other)
  Sender: FDA-Public Use
  Company Number: BR-ABBOTT-12P-020-0975096-00

PATIENT
  Age: 70 Year
  Sex: Female
  Weight: 68 kg

DRUGS (5)
  1. AKINETON [Suspect]
     Indication: PARKINSON^S DISEASE
     Dosage: 2 tb In the morning / 2 tb at night
     Route: 048
  2. AKINETON RETARD [Suspect]
     Indication: PARKINSON^S DISEASE
     Route: 048
  3. AKINETON RETARD [Suspect]
     Route: 048
  4. BETALOR [Concomitant]
     Indication: HYPERTENSION
     Dosage: At 2:00 PM
     Route: 048
  5. HALDOL [Concomitant]
     Indication: SLEEP DISORDER THERAPY

REACTIONS (7)
  - Lacunar infarction [Recovered/Resolved]
  - Fall [Recovering/Resolving]
  - Femur fracture [Recovered/Resolved]
  - Feeling abnormal [Recovered/Resolved]
  - Vomiting [Recovered/Resolved]
  - Abdominal pain upper [Recovered/Resolved]
  - Blood pressure increased [Recovered/Resolved]
